FAERS Safety Report 8743660 (Version 2)
Quarter: 2012Q4

REPORT INFORMATION
  Report Type: 
  Country: US (occurrence: US)
  Receive Date: 20120824
  Receipt Date: 20121119
  Transmission Date: 20130627
  Serious: Yes (Hospitalization, Other)
  Sender: FDA-Public Use
  Company Number: US-B.I. PHARMACEUTICALS,INC./RIDGEFIELD-2012-BP-12684BP

PATIENT
  Age: 61 Year
  Sex: Female

DRUGS (12)
  1. MIRAPEX [Suspect]
     Indication: RESTLESS LEGS SYNDROME
     Dosage: 1 mg
     Route: 048
     Dates: start: 201005
  2. LOSARTAN [Concomitant]
     Indication: HYPERTENSION
     Dosage: 100 mg
     Route: 048
  3. PRISTIQ [Concomitant]
     Indication: DEPRESSION
     Dosage: 100 mg
     Route: 048
  4. CARVEDILOL [Concomitant]
     Indication: HYPERTENSION
     Dosage: 25 mg
     Route: 048
  5. NEXIUM [Concomitant]
     Indication: GASTROOESOPHAGEAL REFLUX DISEASE
     Dosage: 40 mg
     Route: 048
  6. CLONAZEPAM [Concomitant]
     Indication: ANXIETY
     Dosage: 2 mg
     Route: 048
  7. HYDROCODONE [Concomitant]
     Indication: PAIN
     Route: 048
  8. CARISOPRODOL [Concomitant]
     Indication: MUSCLE SPASMS
     Dosage: 350 mg
     Route: 048
  9. LOVASTATIN [Concomitant]
     Indication: BLOOD CHOLESTEROL INCREASED
     Dosage: 40 mg
     Route: 048
  10. OPANA [Concomitant]
     Indication: PAIN
     Route: 048
  11. ASPIRIN [Concomitant]
     Indication: PROPHYLAXIS
     Dosage: 81 mg
     Route: 048
  12. OMEGA 3 FISH OIL [Concomitant]
     Indication: SUPPLEMENTATION THERAPY

REACTIONS (5)
  - Coronary artery occlusion [Recovered/Resolved]
  - Dyspnoea [Unknown]
  - Chest discomfort [Unknown]
  - Dizziness [Unknown]
  - Nausea [Recovered/Resolved]
